FAERS Safety Report 13780831 (Version 1)
Quarter: 2017Q3

REPORT INFORMATION
  Report Type: Spontaneous
  Country: FR (occurrence: FR)
  Receive Date: 20170724
  Receipt Date: 20170724
  Transmission Date: 20171127
  Serious: Yes (Hospitalization)
  Sender: FDA-Public Use
  Company Number: FR-009507513-1707FRA008545

PATIENT
  Age: 57 Year
  Sex: Male

DRUGS (5)
  1. CLOMIPRAMINE HYDROCHLORIDE. [Suspect]
     Active Substance: CLOMIPRAMINE HYDROCHLORIDE
     Route: 048
  2. RISPERIDONE. [Suspect]
     Active Substance: RISPERIDONE
     Indication: BIPOLAR DISORDER
     Dosage: UNK
     Route: 048
     Dates: start: 201408, end: 201502
  3. LOXAPAC (LOXAPINE SUCCINATE) [Suspect]
     Active Substance: LOXAPINE SUCCINATE
     Indication: BIPOLAR DISORDER
     Dosage: UNK
     Route: 048
     Dates: start: 201408, end: 201502
  4. NORSET [Suspect]
     Active Substance: MIRTAZAPINE
     Dosage: UNK
  5. TERALITHE [Suspect]
     Active Substance: LITHIUM CARBONATE
     Route: 048

REACTIONS (5)
  - Extrapyramidal disorder [Unknown]
  - Encephalopathy [Unknown]
  - Prerenal failure [Recovering/Resolving]
  - Coma [Not Recovered/Not Resolved]
  - Hepatocellular injury [Not Recovered/Not Resolved]

NARRATIVE: CASE EVENT DATE: 20150216
